FAERS Safety Report 7233060-3 (Version None)
Quarter: 2011Q1

REPORT INFORMATION
  Report Type: 
  Country: None (occurrence: None)
  Receive Date: 20110119
  Receipt Date: 20110111
  Transmission Date: 20110831
  Serious: Yes (Hospitalization, Other)
  Sender: FDA-Public Use
  Company Number: PHHY2009CA39746

PATIENT
  Sex: Male

DRUGS (8)
  1. FRAGMIN [Concomitant]
  2. PANTOLOC [Concomitant]
     Dosage: 40 MG, 3 PILLS BID
  3. ASPIRIN [Concomitant]
     Dosage: UNK
  4. INSULIN [Concomitant]
  5. SANDOSTATIN LAR [Suspect]
     Dosage: 40 MG, EVERY 4 WEEKS
     Route: 030
  6. SANDOSTATIN LAR [Suspect]
     Dosage: 30 MG, TIW
     Route: 030
  7. SANDOSTATIN LAR [Suspect]
     Indication: NEUROENDOCRINE TUMOUR
     Dosage: 30 MG EVERY 4 WEEKS
     Route: 030
     Dates: start: 20090910
  8. MESALAZINE [Concomitant]

REACTIONS (14)
  - VOMITING [None]
  - INJECTION SITE PAIN [None]
  - OROPHARYNGEAL PAIN [None]
  - COUGH [None]
  - NASOPHARYNGITIS [None]
  - DIARRHOEA [None]
  - DECREASED APPETITE [None]
  - NAUSEA [None]
  - INFECTION [None]
  - INJECTION SITE INDURATION [None]
  - HYPOPHAGIA [None]
  - GASTRITIS [None]
  - INJECTION SITE MASS [None]
  - ABDOMINAL DISCOMFORT [None]
